FAERS Safety Report 8313214-5 (Version None)
Quarter: 2012Q2

REPORT INFORMATION
  Report Type: 
  Country: None (occurrence: None)
  Receive Date: 20120426
  Receipt Date: 20120418
  Transmission Date: 20120825
  Serious: Yes (Life-Threatening)
  Sender: FDA-Public Use
  Company Number: FR-MPIJNJ-2010-05162

PATIENT

DRUGS (13)
  1. CYCLOPHOSPHAMIDE [Suspect]
     Dosage: 300 MG, UNK
     Route: 042
     Dates: start: 20100804
  2. DEXAMETHASONE [Concomitant]
     Indication: MULTIPLE MYELOMA
     Dosage: 40 MG, UNK
     Route: 048
     Dates: start: 20080415, end: 20080912
  3. VELCADE [Suspect]
     Dosage: 1 UNK, UNK
     Route: 065
     Dates: start: 20080603, end: 20080718
  4. TEMESTA                            /00273201/ [Concomitant]
     Dosage: UNK
  5. VELCADE [Suspect]
     Dosage: 0.7 UNK, UNK
     Route: 065
     Dates: start: 20080804, end: 20080912
  6. EPREX [Concomitant]
     Dosage: UNK
     Dates: end: 20100507
  7. PAROXETINE HYDROCHLORIDE [Concomitant]
     Dosage: UNK
  8. ZELITREX                           /01269701/ [Concomitant]
     Dosage: UNK
     Dates: start: 20080415
  9. DURAGESIC-100 [Concomitant]
  10. VELCADE [Suspect]
     Indication: MULTIPLE MYELOMA
     Dosage: 1.3 MG/M2, UNK
     Route: 065
     Dates: start: 20080415, end: 20080516
  11. DEXAMETHASONE [Concomitant]
     Dosage: 40 UNK, UNK
     Route: 048
     Dates: start: 20100804
  12. LASIX [Concomitant]
     Dosage: UNK
  13. DAFALGAN                           /00020001/ [Concomitant]
     Dosage: UNK
     Dates: start: 20080506

REACTIONS (1)
  - THROMBOCYTOPENIA [None]
